FAERS Safety Report 16464084 (Version 1)
Quarter: 2019Q3

REPORT INFORMATION
  Report Type: Spontaneous
  Country: US (occurrence: US)
  Receive Date: 20190620
  Receipt Date: 20190620
  Transmission Date: 20191004
  Serious: Yes (Other)
  Sender: FDA-Public Use
  Company Number: None

PATIENT
  Age: 60 Year
  Sex: Female
  Weight: 63 kg

DRUGS (11)
  1. LEVOTHYROXINE. [Concomitant]
     Active Substance: LEVOTHYROXINE
  2. D-AMPHETAMINE [Concomitant]
     Active Substance: DEXTROAMPHETAMINE
  3. TRAZODONE [Concomitant]
     Active Substance: TRAZODONE HYDROCHLORIDE
  4. KRILL OIL [Concomitant]
     Active Substance: DIETARY SUPPLEMENT\KRILL OIL
  5. XANAX [Concomitant]
     Active Substance: ALPRAZOLAM
  6. WELLBUTRIN [Concomitant]
     Active Substance: BUPROPION HYDROCHLORIDE
  7. CLONAZEPAM. [Concomitant]
     Active Substance: CLONAZEPAM
  8. HAIR, SKIN + NAILS BY WALGREENS [Concomitant]
  9. MAGNESIUM GLYCINATE [Concomitant]
     Active Substance: MAGNESIUM GLYCINATE
  10. ALLERGEN [Concomitant]
     Active Substance: UNSPECIFIED INGREDIENT
  11. LATUDA [Suspect]
     Active Substance: LURASIDONE HYDROCHLORIDE
     Indication: PRODUCT USED FOR UNKNOWN INDICATION
     Dosage: ?          QUANTITY:1 TABLET(S);?
     Route: 048

REACTIONS (10)
  - Sinus tachycardia [None]
  - Withdrawal syndrome [None]
  - Obsessive-compulsive disorder [None]
  - Social avoidant behaviour [None]
  - Agoraphobia [None]
  - Hyperventilation [None]
  - Compulsive cheek biting [None]
  - Depression [None]
  - Tongue movement disturbance [None]
  - Anxiety [None]

NARRATIVE: CASE EVENT DATE: 20190501
